FAERS Safety Report 6944740-9 (Version None)
Quarter: 2010Q3

REPORT INFORMATION
  Report Type: 
  Country: None (occurrence: None)
  Receive Date: 20100827
  Receipt Date: 20100819
  Transmission Date: 20110219
  Serious: Yes (Other)
  Sender: FDA-Public Use
  Company Number: GB-WYE-G06569310

PATIENT
  Sex: Male

DRUGS (2)
  1. REFACTO [Suspect]
     Dosage: ^NORMAL DOSE^
  2. ADVATE [Concomitant]
     Dosage: UNKNOWN

REACTIONS (1)
  - DRUG INEFFECTIVE [None]
